FAERS Safety Report 14773654 (Version 2)
Quarter: 2018Q2

REPORT INFORMATION
  Report Type: Spontaneous
  Country: IT (occurrence: IT)
  Receive Date: 20180418
  Receipt Date: 20180622
  Transmission Date: 20180711
  Serious: Yes (Hospitalization)
  Sender: FDA-Public Use
  Company Number: IT-ROCHE-2105644

PATIENT
  Age: 38 Year
  Sex: Female

DRUGS (3)
  1. EFEXOR [Suspect]
     Active Substance: VENLAFAXINE HYDROCHLORIDE
     Indication: DEPRESSION
     Route: 048
     Dates: start: 20170101, end: 20170910
  2. LARGACTIL [Concomitant]
     Active Substance: CHLORPROMAZINE
  3. RIVOTRIL [Suspect]
     Active Substance: CLONAZEPAM
     Indication: DEPRESSION
     Route: 048
     Dates: start: 20170101, end: 20170910

REACTIONS (2)
  - Somnolence [Unknown]
  - Agitation [Unknown]

NARRATIVE: CASE EVENT DATE: 20170910
